FAERS Safety Report 16031297 (Version 1)
Quarter: 2019Q1

REPORT INFORMATION
  Report Type: Spontaneous
  Country: BR (occurrence: BR)
  Receive Date: 20190304
  Receipt Date: 20190304
  Transmission Date: 20190418
  Serious: Yes (Other)
  Sender: FDA-Public Use
  Company Number: BR-PFIZER INC-2019089171

PATIENT
  Sex: Female

DRUGS (1)
  1. LORAX//LORAZEPAM [Suspect]
     Active Substance: LORAZEPAM
     Dosage: UNK
     Dates: start: 2010

REACTIONS (3)
  - Product use issue [Unknown]
  - Insomnia [Unknown]
  - Drug dependence [Unknown]

NARRATIVE: CASE EVENT DATE: 2010
